FAERS Safety Report 10985054 (Version 1)
Quarter: 2015Q1

REPORT INFORMATION
  Report Type: Spontaneous
  Country: US (occurrence: None)
  Receive Date: 20150313
  Receipt Date: 20150313
  Transmission Date: 20150721
  Serious: Yes (Other)
  Sender: FDA-Public Use
  Company Number: 1404909

PATIENT
  Age: 61 Year
  Sex: Female

DRUGS (1)
  1. XOLAIR [Suspect]
     Active Substance: OMALIZUMAB
     Indication: ASTHMA
     Dosage: 150 MG, 1 IN 4 WK, SUBCUTANEOUS
     Route: 058
     Dates: start: 20140318

REACTIONS (7)
  - Injection site swelling [None]
  - Urticaria [None]
  - Skin burning sensation [None]
  - Pain [None]
  - Pruritus [None]
  - Drug hypersensitivity [None]
  - Injection site discolouration [None]

NARRATIVE: CASE EVENT DATE: 20140415
